FAERS Safety Report 7153862-1 (Version None)
Quarter: 2010Q4

REPORT INFORMATION
  Report Type: 
  Country: None (occurrence: None)
  Receive Date: 20101213
  Receipt Date: 20101012
  Transmission Date: 20110411
  Serious: No
  Sender: FDA-Public Use
  Company Number: US-ABBOTT-10P-163-0677703-00

PATIENT
  Sex: Female
  Weight: 95.34 kg

DRUGS (8)
  1. MERIDIA [Suspect]
     Indication: WEIGHT CONTROL
     Dates: start: 20080101
  2. MERIDIA [Suspect]
     Dates: end: 20101012
  3. ZOLOFT [Concomitant]
     Indication: DEPRESSION
  4. XANAX [Concomitant]
     Indication: SLEEP DISORDER THERAPY
  5. VITAMIN B [Concomitant]
     Indication: VITAMIN SUPPLEMENTATION
  6. BIOTIN [Concomitant]
     Indication: SUPPLEMENTATION THERAPY
  7. PRENATAL VITAMINS [Concomitant]
     Indication: VITAMIN SUPPLEMENTATION
  8. CALCIUM [Concomitant]
     Indication: SUPPLEMENTATION THERAPY

REACTIONS (9)
  - BREAST MASS [None]
  - CARDIAC FLUTTER [None]
  - CHEST DISCOMFORT [None]
  - CHEST PAIN [None]
  - DYSPNOEA [None]
  - DYSPNOEA EXERTIONAL [None]
  - PAIN IN EXTREMITY [None]
  - PALPITATIONS [None]
  - STRESS [None]
